FAERS Safety Report 16217729 (Version 3)
Quarter: 2020Q1

REPORT INFORMATION
  Report Type: Spontaneous
  Country: US (occurrence: US)
  Receive Date: 20190419
  Receipt Date: 20200210
  Transmission Date: 20200409
  Serious: Yes (Other)
  Sender: FDA-Public Use
  Company Number: US-SA-2019SA109901

PATIENT
  Age: 54 Year
  Sex: Female

DRUGS (2)
  1. AUBAGIO [Suspect]
     Active Substance: TERIFLUNOMIDE
     Dosage: 7 MG, QD (STRENGTH: 7MG)
     Route: 048
     Dates: start: 20190304
  2. AUBAGIO [Suspect]
     Active Substance: TERIFLUNOMIDE
     Dosage: 1 DF, QD (STRENGTH: 14 MG)
     Route: 048

REACTIONS (6)
  - Decreased appetite [Unknown]
  - Abdominal distension [Unknown]
  - Duodenitis [Unknown]
  - Diarrhoea [Unknown]
  - Alopecia [Unknown]
  - Pancreatitis [Unknown]

NARRATIVE: CASE EVENT DATE: 20190410
